FAERS Safety Report 8879662 (Version 1)
Quarter: 2012Q4

REPORT INFORMATION
  Report Type: 
  Country: None (occurrence: None)
  Receive Date: 20121031
  Receipt Date: 20121031
  Transmission Date: 20130627
  Serious: Yes (Other)
  Sender: FDA-Public Use
  Company Number: RS-GLAXOSMITHKLINE-B0835508A

PATIENT
  Age: 58 Year
  Sex: Female

DRUGS (5)
  1. SERETIDE [Suspect]
     Indication: CHRONIC OBSTRUCTIVE PULMONARY DISEASE
     Route: 055
  2. ANTIBIOTIC (UNKNOWN) [Concomitant]
     Indication: JAW CYST
     Route: 065
  3. BERODUAL [Concomitant]
     Route: 065
  4. AMINOFILIN [Concomitant]
     Route: 065
  5. UNKNOWN DRUG [Concomitant]
     Route: 065

REACTIONS (2)
  - Candidiasis [Recovered/Resolved]
  - Throat irritation [Recovered/Resolved]
